FAERS Safety Report 6766737-4 (Version None)
Quarter: 2010Q2

REPORT INFORMATION
  Report Type: 
  Country: None (occurrence: None)
  Receive Date: 20100611
  Receipt Date: 20100604
  Transmission Date: 20101027
  Serious: Yes (Life-Threatening, Hospitalization)
  Sender: FDA-Public Use
  Company Number: GB-AMGEN-QUU392191

PATIENT
  Sex: Female
  Weight: 63 kg

DRUGS (9)
  1. NEULASTA [Suspect]
     Indication: CHEMOTHERAPY
     Route: 058
     Dates: start: 20100203, end: 20100203
  2. CYCLOPHOSPHAMIDE [Suspect]
     Route: 042
     Dates: start: 20100202, end: 20100202
  3. ADRIAMYCIN PFS [Suspect]
     Route: 042
     Dates: start: 20100202, end: 20100202
  4. VINCRISTINE [Concomitant]
     Route: 042
     Dates: start: 20100202, end: 20100202
  5. ONDANSETRON [Concomitant]
     Route: 042
     Dates: start: 20100202, end: 20100204
  6. DEXAMETHASONE [Concomitant]
     Route: 042
     Dates: start: 20100202, end: 20100204
  7. LEVOTHYROXINE SODIUM [Concomitant]
     Route: 048
  8. DOTHIEPIN HYDROCHLORIDE [Concomitant]
     Route: 048
  9. MIRTAZAPINE [Concomitant]
     Route: 048

REACTIONS (1)
  - FEBRILE NEUTROPENIA [None]
